FAERS Safety Report 17391905 (Version 3)
Quarter: 2020Q1

REPORT INFORMATION
  Report Type: Spontaneous
  Country: US (occurrence: US)
  Receive Date: 20200207
  Receipt Date: 20200311
  Transmission Date: 20200409
  Serious: Yes (Other)
  Sender: FDA-Public Use
  Company Number: US-CELGENEUS-USA-20200200586

PATIENT
  Sex: Female

DRUGS (1)
  1. OTEZLA [Suspect]
     Active Substance: APREMILAST
     Indication: PSORIATIC ARTHROPATHY
     Dosage: 120 MILLIGRAM
     Route: 048
     Dates: start: 20161103

REACTIONS (4)
  - Road traffic accident [Unknown]
  - Intervertebral disc injury [Unknown]
  - Psoriatic arthropathy [Unknown]
  - Weight decreased [Unknown]
